FAERS Safety Report 22518966 (Version 1)
Quarter: 2023Q2

REPORT INFORMATION
  Report Type: Other
  Country: US (occurrence: US)
  Receive Date: 20230605
  Receipt Date: 20230605
  Transmission Date: 20230722
  Serious: Yes (Hospitalization)
  Sender: FDA-Public Use
  Company Number: US-Bion-011652

PATIENT
  Age: 65 Year
  Sex: Male

DRUGS (2)
  1. IBUPROFEN [Suspect]
     Active Substance: IBUPROFEN
     Indication: Abdominal pain upper
  2. ASPIRIN [Concomitant]
     Active Substance: ASPIRIN
     Indication: Abdominal pain upper

REACTIONS (1)
  - Dieulafoy^s vascular malformation [Unknown]
